FAERS Safety Report 9897193 (Version 1)
Quarter: 2014Q1

REPORT INFORMATION
  Report Type: Spontaneous
  Country: SE (occurrence: SE)
  Receive Date: 20140214
  Receipt Date: 20140214
  Transmission Date: 20141002
  Serious: Yes (Hospitalization)
  Sender: FDA-Public Use
  Company Number: SE-009507513-1402SWE003918

PATIENT
  Age: 74 Year
  Sex: Female

DRUGS (1)
  1. TEMODAL [Suspect]
     Indication: GLIOBLASTOMA MULTIFORME
     Dosage: TOTAL DAILY DOSE 75 MG/M2, FREQUENCY: DAILY
     Route: 048
     Dates: start: 20140102, end: 201401

REACTIONS (2)
  - Autoimmune disorder [Unknown]
  - Thrombocytopenia [Recovering/Resolving]
